FAERS Safety Report 9172844 (Version 1)
Quarter: 2012Q4

REPORT INFORMATION
  Report Type: 
  Country: US (occurrence: US)
  Receive Date: 20120911
  Receipt Date: 20120911
  Transmission Date: 20130627
  Serious: Yes (Other)
  Sender: FDA-Public Use
  Company Number: US-JUTA-2012-15788

PATIENT
  Age: 61 Year
  Sex: Male

DRUGS (4)
  1. PIOGLITAZONE (UNKNOWN) [Suspect]
     Indication: TYPE 2 DIABETES MELLITUS
     Dosage: 45 mg, daily
     Route: 065
  2. METFORMIN HYDROCHLORIDE (WATSON LABORATORIES) [Suspect]
     Indication: TYPE 2 DIABETES MELLITUS
     Dosage: 1000 mg, bid
     Route: 065
  3. CLOPIDOGREL (UNKNOWN) [Suspect]
     Indication: STENT PLACEMENT
     Route: 065
  4. ROSIGLITAZONE [Suspect]
     Indication: PRODUCT USED FOR UNKNOWN INDICATION
     Route: 065

REACTIONS (2)
  - Bladder cancer [Recovered/Resolved]
  - Haematuria [Unknown]
